FAERS Safety Report 7602142-6 (Version None)
Quarter: 2011Q3

REPORT INFORMATION
  Report Type: 
  Country: None (occurrence: None)
  Receive Date: 20110711
  Receipt Date: 20081222
  Transmission Date: 20111222
  Serious: Yes (Other)
  Sender: FDA-Public Use
  Company Number: US-BAYER-200834783NA

PATIENT
  Age: 45 Year
  Sex: Female
  Weight: 75.918 kg

DRUGS (41)
  1. GADOLINIUM IN UNSPECIFIED DRUG [Suspect]
     Indication: ANGIOGRAM
  2. GADOLINIUM IN UNSPECIFIED DRUG [Suspect]
  3. LORAZEPAM [Concomitant]
  4. RENAGEL [Concomitant]
  5. NITROGLYCERIN [Concomitant]
  6. PROHANCE [Suspect]
     Indication: NUCLEAR MAGNETIC RESONANCE IMAGING
  7. GADOLINIUM IN UNSPECIFIED DRUG [Suspect]
  8. OXYCODONE HCL [Concomitant]
  9. MAGNEVIST [Suspect]
     Indication: ANGIOPLASTY
     Dosage: 55 ML, ONCE
     Dates: start: 20040818, end: 20040818
  10. MAGNEVIST [Suspect]
     Indication: FISTULOGRAM
     Dosage: 30 ML, ONCE
     Dates: start: 20050218, end: 20050218
  11. ACETYLSALICYLIC ACID SRT [Concomitant]
  12. PREDNISONE [Concomitant]
  13. WARFARIN SODIUM [Concomitant]
  14. MAGNEVIST [Suspect]
     Indication: NUCLEAR MAGNETIC RESONANCE IMAGING
     Dosage: 40 ML, ONCE
     Dates: start: 20040127, end: 20040127
  15. GADOLINIUM IN UNSPECIFIED DRUG [Suspect]
  16. NEURONTIN [Concomitant]
  17. MAGNEVIST [Suspect]
     Dosage: 15 ML, ONCE
     Dates: start: 20040913, end: 20040913
  18. MULTIHANCE [Suspect]
     Indication: NUCLEAR MAGNETIC RESONANCE IMAGING
  19. GADOLINIUM IN UNSPECIFIED DRUG [Suspect]
     Indication: FISTULOGRAM
  20. GADOLINIUM IN UNSPECIFIED DRUG [Suspect]
     Indication: ANGIOPLASTY
  21. GADOLINIUM IN UNSPECIFIED DRUG [Suspect]
     Indication: VENOGRAM
  22. METOPROLOL TARTRATE [Concomitant]
  23. ZEMPLAR [Concomitant]
  24. MAGNEVIST [Suspect]
     Dosage: 33 ML, ONCE
     Dates: start: 20051025, end: 20051025
  25. OPTIMARK [Suspect]
     Indication: NUCLEAR MAGNETIC RESONANCE IMAGING
  26. GADOLINIUM IN UNSPECIFIED DRUG [Suspect]
  27. LIPITOR [Concomitant]
  28. RELAFEN [Concomitant]
  29. MAGNEVIST [Suspect]
     Dosage: UNK UNK, ONCE
     Dates: start: 20041210, end: 20041210
  30. MAGNEVIST [Suspect]
     Indication: VENOGRAM
     Dosage: 42 ML, ONCE
     Dates: start: 20060323, end: 20060323
  31. MAGNEVIST [Suspect]
     Dosage: 30 ML, ONCE
     Dates: start: 20060620, end: 20060620
  32. GADOLINIUM IN UNSPECIFIED DRUG [Suspect]
  33. EPOGEN [Concomitant]
  34. IRON SUPPLEMENT [Concomitant]
  35. MAGNEVIST [Suspect]
     Indication: ANGIOGRAM
     Dosage: 50 ML, ONCE
     Dates: start: 20040419, end: 20040419
  36. MAGNEVIST [Suspect]
     Dosage: UNK, ONCE
     Dates: start: 20061012, end: 20061012
  37. OMNISCAN [Suspect]
     Indication: NUCLEAR MAGNETIC RESONANCE IMAGING
  38. FOLIC ACID [Concomitant]
  39. NEPHROVITE [VIT C,VIT H,B5,B12,B9,B3,B6,B2,B1 HCL] [Concomitant]
  40. COUMADIN [Concomitant]
  41. MIDODRINE HYDROCHLORIDE [Concomitant]

REACTIONS (17)
  - FIBROSIS [None]
  - SCAR [None]
  - MOBILITY DECREASED [None]
  - SKIN TIGHTNESS [None]
  - DEPRESSION [None]
  - SKIN DISCOLOURATION [None]
  - ABASIA [None]
  - SKIN LESION [None]
  - ANXIETY [None]
  - GENERAL PHYSICAL HEALTH DETERIORATION [None]
  - SKIN HYPERTROPHY [None]
  - INJURY [None]
  - PAIN [None]
  - JOINT SWELLING [None]
  - MUSCULAR WEAKNESS [None]
  - NEPHROGENIC SYSTEMIC FIBROSIS [None]
  - SKIN MASS [None]
